FAERS Safety Report 6596181-4 (Version None)
Quarter: 2010Q1

REPORT INFORMATION
  Report Type: 
  Country: None (occurrence: None)
  Receive Date: 20100216
  Receipt Date: 20100205
  Transmission Date: 20100710
  Serious: No
  Sender: FDA-Public Use
  Company Number: 20108146

PATIENT
  Age: 21 Year
  Sex: Female

DRUGS (1)
  1. LIORESAL [Suspect]
     Indication: MUSCLE SPASTICITY
     Dosage: 200-220 MCG, DAILY, INTRATHECAL
     Route: 037

REACTIONS (3)
  - DISCOMFORT [None]
  - DRUG EXPOSURE DURING PREGNANCY [None]
  - MUSCLE SPASTICITY [None]
